FAERS Safety Report 15932115 (Version 1)
Quarter: 2019Q1

REPORT INFORMATION
  Report Type: Spontaneous
  Country: US (occurrence: US)
  Receive Date: 20190207
  Receipt Date: 20190207
  Transmission Date: 20190417
  Serious: Yes (Disabling, Other)
  Sender: FDA-Public Use
  Company Number: None

PATIENT
  Age: 73 Year
  Sex: Female
  Weight: 51.75 kg

DRUGS (1)
  1. PROLIA [Suspect]
     Active Substance: DENOSUMAB
     Indication: BONE DENSITY DECREASED
     Dosage: ?          OTHER FREQUENCY:EVERY 6 MONTHS;?
     Route: 030
     Dates: start: 20190201

REACTIONS (7)
  - Fatigue [None]
  - Gait disturbance [None]
  - Angina pectoris [None]
  - Cardiac disorder [None]
  - Myalgia [None]
  - Bone pain [None]
  - Muscular weakness [None]

NARRATIVE: CASE EVENT DATE: 20190206
